FAERS Safety Report 8026839-1 (Version None)
Quarter: 2012Q1

REPORT INFORMATION
  Report Type: 
  Country: None (occurrence: None)
  Receive Date: 20120106
  Receipt Date: 20120103
  Transmission Date: 20120608
  Serious: No
  Sender: FDA-Public Use
  Company Number: US-PFIZER INC-2012002429

PATIENT
  Sex: Male

DRUGS (2)
  1. LYRICA [Suspect]
     Dosage: 75 MG, UNK
  2. LYRICA [Suspect]
     Dosage: 100 MG, 2X/DAY

REACTIONS (3)
  - DISTURBANCE IN ATTENTION [None]
  - HEARING IMPAIRED [None]
  - DRY MOUTH [None]
